FAERS Safety Report 12601322 (Version 3)
Quarter: 2016Q3

REPORT INFORMATION
  Report Type: Spontaneous
  Country: US (occurrence: US)
  Receive Date: 20160728
  Receipt Date: 20160808
  Transmission Date: 20161109
  Serious: No
  Sender: FDA-Public Use
  Company Number: US-BEH-2016062992

PATIENT
  Age: 63 Year
  Sex: Female
  Weight: 51 kg

DRUGS (37)
  1. GABAPENTIN. [Concomitant]
     Active Substance: GABAPENTIN
  2. DIAZEPAM. [Concomitant]
     Active Substance: DIAZEPAM
  3. UROXATRAL [Concomitant]
     Active Substance: ALFUZOSIN HYDROCHLORIDE
  4. CYMBALTA [Concomitant]
     Active Substance: DULOXETINE HYDROCHLORIDE
  5. POTASSIUM CHLORIDE. [Concomitant]
     Active Substance: POTASSIUM CHLORIDE
  6. COLCRYS [Concomitant]
     Active Substance: COLCHICINE
  7. PERCOCET [Concomitant]
     Active Substance: ACETAMINOPHEN\OXYCODONE HYDROCHLORIDE
  8. HIZENTRA [Suspect]
     Active Substance: HUMAN IMMUNOGLOBULIN G
     Route: 058
  9. DIPHENHYDRAMINE. [Concomitant]
     Active Substance: DIPHENHYDRAMINE
  10. EPIPEN [Concomitant]
     Active Substance: EPINEPHRINE
  11. FISH OIL [Concomitant]
     Active Substance: FISH OIL
  12. HIZENTRA [Suspect]
     Active Substance: HUMAN IMMUNOGLOBULIN G
     Indication: HYPOGAMMAGLOBULINAEMIA
     Route: 058
  13. ACETAMINOPHEN. [Concomitant]
     Active Substance: ACETAMINOPHEN
  14. METAXALONE. [Concomitant]
     Active Substance: METAXALONE
  15. BOTOX [Concomitant]
     Active Substance: ONABOTULINUMTOXINA
  16. NASONEX [Concomitant]
     Active Substance: MOMETASONE FUROATE
  17. PANTOPRAZOLE [Concomitant]
     Active Substance: PANTOPRAZOLE SODIUM
  18. ACIDOPHILUS [Concomitant]
     Active Substance: LACTOBACILLUS ACIDOPHILUS
  19. OMEPRAZOLE. [Concomitant]
     Active Substance: OMEPRAZOLE
  20. RANITIDINE. [Concomitant]
     Active Substance: RANITIDINE
  21. MAGNESIUM [Concomitant]
     Active Substance: MAGNESIUM
  22. L-M-X [Concomitant]
  23. TOPAMAX [Concomitant]
     Active Substance: TOPIRAMATE
  24. VITAMIN D2 [Concomitant]
     Active Substance: ERGOCALCIFEROL
  25. FROVA [Concomitant]
     Active Substance: FROVATRIPTAN SUCCINATE
  26. HIZENTRA [Suspect]
     Active Substance: HUMAN IMMUNOGLOBULIN G
     Route: 058
  27. RITALIN [Concomitant]
     Active Substance: METHYLPHENIDATE HYDROCHLORIDE
  28. ENBREL [Concomitant]
     Active Substance: ETANERCEPT
  29. METHOTREXATE. [Concomitant]
     Active Substance: METHOTREXATE
  30. SYSTANE (HYPROMELLOSE 2910 (4000 MPA.S)) [Concomitant]
     Active Substance: HYPROMELLOSE 2910 (4000 MPA.S)
  31. RESTASIS [Concomitant]
     Active Substance: CYCLOSPORINE
  32. MEDROL [Concomitant]
     Active Substance: METHYLPREDNISOLONE
  33. MECLIZINE [Concomitant]
     Active Substance: MECLIZINE HYDROCHLORIDE
  34. FOLIC ACID. [Concomitant]
     Active Substance: FOLIC ACID
  35. VAGIFEM [Concomitant]
     Active Substance: ESTRADIOL
  36. NORVASC [Concomitant]
     Active Substance: AMLODIPINE BESYLATE
  37. PROMETHAZINE [Concomitant]
     Active Substance: PROMETHAZINE\PROMETHAZINE HYDROCHLORIDE

REACTIONS (1)
  - Cystitis [Unknown]

NARRATIVE: CASE EVENT DATE: 20160305
